FAERS Safety Report 8962765 (Version 3)
Quarter: 2013Q1

REPORT INFORMATION
  Report Type: Spontaneous
  Country: US (occurrence: US)
  Receive Date: 20121213
  Receipt Date: 20130116
  Transmission Date: 20140127
  Serious: No
  Sender: FDA-Public Use
  Company Number: US-PFIZER INC-2012310007

PATIENT
  Age: 59 Year
  Sex: Female
  Weight: 77.1 kg

DRUGS (6)
  1. LYRICA [Suspect]
     Indication: FIBROMYALGIA
     Dosage: 50 MG, 3X/DAY
     Route: 048
     Dates: start: 201211
  2. LYRICA [Suspect]
     Indication: DIABETIC NEUROPATHY
  3. LYRICA [Suspect]
     Indication: PAIN IN EXTREMITY
  4. LEVEMIR [Concomitant]
     Indication: DIABETES MELLITUS
     Dosage: 35 IU, 2X/DAY
  5. NOVOLOG [Concomitant]
     Indication: DIABETES MELLITUS
     Dosage: 20 IU, 3X/DAY
  6. HUMALOG [Concomitant]
     Indication: DIABETES MELLITUS
     Dosage: 10 IU, DAILY

REACTIONS (2)
  - Somnolence [Unknown]
  - Therapeutic response unexpected [Unknown]
